FAERS Safety Report 5604015-7 (Version None)
Quarter: 2008Q1

REPORT INFORMATION
  Report Type: 
  Country: None (occurrence: None)
  Receive Date: 20080128
  Receipt Date: 20080116
  Transmission Date: 20080703
  Serious: Yes (Hospitalization)
  Sender: FDA-Public Use
  Company Number: PHHO2008FR01229

PATIENT
  Age: 34 Year
  Sex: Male
  Weight: 55 kg

DRUGS (10)
  1. CGP 57148B [Suspect]
     Indication: ACUTE LYMPHOCYTIC LEUKAEMIA
     Dosage: 400 MG, BID
     Route: 048
     Dates: start: 20061013
  2. HYPER-CVAD [Suspect]
  3. MOPRAL [Concomitant]
  4. TRANSIPEG [Concomitant]
  5. MYOLASTAN [Concomitant]
  6. VALACYCLOVIR [Concomitant]
  7. LARGACTIL [Concomitant]
  8. PRIMPERAN INJ [Concomitant]
  9. SPASFON [Concomitant]
  10. LAROXYL [Concomitant]

REACTIONS (16)
  - APLASIA [None]
  - ASTHENIA [None]
  - BACTERIAL INFECTION [None]
  - BLADDER CATHETERISATION [None]
  - CHILLS [None]
  - ESCHERICHIA SEPSIS [None]
  - FEBRILE NEUTROPENIA [None]
  - FLANK PAIN [None]
  - HAEMODYNAMIC INSTABILITY [None]
  - HYPERTHERMIA [None]
  - HYPOTENSION [None]
  - NOSOCOMIAL INFECTION [None]
  - OLIGURIA [None]
  - SEPTIC SHOCK [None]
  - STAPHYLOCOCCAL INFECTION [None]
  - STREPTOCOCCAL INFECTION [None]
